FAERS Safety Report 16638800 (Version 3)
Quarter: 2020Q3

REPORT INFORMATION
  Report Type: Spontaneous
  Country: GB (occurrence: GB)
  Receive Date: 20190726
  Receipt Date: 20200904
  Transmission Date: 20201102
  Serious: Yes (Life-Threatening, Hospitalization, Disabling, Other)
  Sender: FDA-Public Use
  Company Number: GB-SA-2019SA138800

PATIENT

DRUGS (3)
  1. IMIQUIMOD. [Suspect]
     Active Substance: IMIQUIMOD
     Dosage: UNK,UNK
     Route: 065
     Dates: start: 201709
  2. LEMTRADA [Suspect]
     Active Substance: ALEMTUZUMAB
     Indication: RELAPSING-REMITTING MULTIPLE SCLEROSIS
     Dosage: UNK UNK, QD
     Route: 041
     Dates: start: 20170116, end: 20170120
  3. IMIQUIMOD. [Suspect]
     Active Substance: IMIQUIMOD
     Indication: ANOGENITAL WARTS
     Dosage: UNK

REACTIONS (9)
  - Quadriparesis [Recovering/Resolving]
  - Wheelchair user [Unknown]
  - Bulbar palsy [Recovering/Resolving]
  - Motor dysfunction [Recovering/Resolving]
  - Aphasia [Recovering/Resolving]
  - Leukoencephalopathy [Recovering/Resolving]
  - Neurological decompensation [Recovering/Resolving]
  - Cognitive disorder [Unknown]
  - Bedridden [Unknown]

NARRATIVE: CASE EVENT DATE: 201711
